FAERS Safety Report 4710830-4 (Version None)
Quarter: 2005Q3

REPORT INFORMATION
  Report Type: 
  Country: None (occurrence: None)
  Receive Date: 20050711
  Receipt Date: 20050329
  Transmission Date: 20060218
  Serious: Yes (Hospitalization, Other)
  Sender: FDA-Public Use
  Company Number: US-GLAXOSMITHKLINE-A0552416A

PATIENT
  Age: 16 Year
  Sex: Male

DRUGS (2)
  1. PAXIL CR [Suspect]
     Indication: DEPRESSION
     Dosage: 12.5MG PER DAY
     Route: 048
     Dates: start: 20020905
  2. DEPAKOTE [Concomitant]
     Indication: DRUG USE FOR UNKNOWN INDICATION
     Dosage: 250MG AT NIGHT
     Route: 065
     Dates: start: 20021203

REACTIONS (9)
  - ANXIETY [None]
  - DEPRESSION [None]
  - INTENTIONAL MISUSE [None]
  - INTENTIONAL SELF-INJURY [None]
  - OBSESSIVE-COMPULSIVE DISORDER [None]
  - PANIC ATTACK [None]
  - SELF MUTILATION [None]
  - SUICIDAL IDEATION [None]
  - SUICIDE ATTEMPT [None]
